FAERS Safety Report 14876504 (Version 1)
Quarter: 2018Q2

REPORT INFORMATION
  Report Type: Spontaneous
  Country: FR (occurrence: FR)
  Receive Date: 20180510
  Receipt Date: 20180510
  Transmission Date: 20180711
  Serious: Yes (Life-Threatening, Hospitalization)
  Sender: FDA-Public Use
  Company Number: FR-PFIZER INC-2018190551

PATIENT
  Age: 49 Year
  Sex: Male

DRUGS (4)
  1. IVABRADINE [Suspect]
     Active Substance: IVABRADINE
     Dosage: 150 MG, UNK (TOTAL)
     Route: 048
     Dates: start: 20180210, end: 20180210
  2. LEXOMIL [Suspect]
     Active Substance: BROMAZEPAM
     Dosage: 90 MG, UNK (TOTAL)
     Route: 048
     Dates: start: 20180210, end: 20180210
  3. NEBIVOLOL. [Suspect]
     Active Substance: NEBIVOLOL
     Indication: SUICIDE ATTEMPT
     Dosage: UNK (TOTAL)
     Route: 048
     Dates: start: 20180210, end: 20180210
  4. TRIATEC (RAMIPRIL) [Suspect]
     Active Substance: RAMIPRIL
     Dosage: 50 MG, UNK (TOTAL)
     Route: 048
     Dates: start: 20180210, end: 20180210

REACTIONS (7)
  - Suicide attempt [Recovered/Resolved]
  - Sinus bradycardia [Recovered/Resolved]
  - Psychomotor hyperactivity [Recovered/Resolved]
  - Haemodynamic instability [Recovered/Resolved]
  - Somnolence [Recovered/Resolved]
  - Intentional overdose [Unknown]
  - Electrocardiogram QT prolonged [Recovered/Resolved]

NARRATIVE: CASE EVENT DATE: 20180210
